FAERS Safety Report 10015284 (Version 4)
Quarter: 2021Q1

REPORT INFORMATION
  Report Type: Spontaneous
  Country: US (occurrence: US)
  Receive Date: 20140317
  Receipt Date: 20210111
  Transmission Date: 20210419
  Serious: No
  Sender: FDA-Public Use
  Company Number: US-PFIZER INC-2014072534

PATIENT
  Age: 53 Year
  Sex: Male

DRUGS (2)
  1. LYRICA [Suspect]
     Active Substance: PREGABALIN
     Indication: PAIN
     Dosage: 300 MG, 4X/DAY
     Route: 048
  2. LYRICA [Suspect]
     Active Substance: PREGABALIN
     Indication: PHANTOM LIMB SYNDROME
     Dosage: 150 MG, AS NEEDED [EVERY 6 HOURS AS NEEDED]
     Route: 048

REACTIONS (5)
  - Prescribed overdose [Unknown]
  - Upper respiratory tract congestion [Unknown]
  - Drug effective for unapproved indication [Unknown]
  - Nasopharyngitis [Unknown]
  - Off label use [Unknown]
